FAERS Safety Report 14619627 (Version 1)
Quarter: 2018Q1

REPORT INFORMATION
  Report Type: Spontaneous
  Country: US (occurrence: US)
  Receive Date: 20180309
  Receipt Date: 20180309
  Transmission Date: 20180509
  Serious: Yes (Other)
  Sender: FDA-Public Use
  Company Number: None

PATIENT
  Age: 57 Year
  Sex: Male
  Weight: 65.7 kg

DRUGS (14)
  1. ZOLOFT [Concomitant]
     Active Substance: SERTRALINE HYDROCHLORIDE
     Dates: start: 20171127
  2. ZYPREXA [Concomitant]
     Active Substance: OLANZAPINE
     Dates: start: 20170929
  3. SYNTHROID [Concomitant]
     Active Substance: LEVOTHYROXINE SODIUM
     Dates: start: 20170502
  4. LANOXIN [Concomitant]
     Active Substance: DIGOXIN
     Dates: start: 20170402
  5. KLONOPIN [Concomitant]
     Active Substance: CLONAZEPAM
     Dates: start: 20180131
  6. XALATAN [Concomitant]
     Active Substance: LATANOPROST
     Dates: start: 20170411
  7. COREG [Concomitant]
     Active Substance: CARVEDILOL
     Dates: start: 20170830
  8. RISPERDAL [Concomitant]
     Active Substance: RISPERIDONE
     Dates: start: 20170303
  9. MIRALAX [Concomitant]
     Active Substance: POLYETHYLENE GLYCOL 3350
     Dates: start: 20170626
  10. OXCARBAZAPINE [Suspect]
     Active Substance: OXCARBAZEPINE
     Indication: AFFECTIVE DISORDER
     Dosage: AT BEDTIME
     Route: 048
     Dates: start: 20180206, end: 20180207
  11. ZOCOR [Concomitant]
     Active Substance: SIMVASTATIN
     Dates: start: 20170201
  12. PRILOSEC [Concomitant]
     Active Substance: OMEPRAZOLE MAGNESIUM
     Dates: start: 20170731
  13. THORAZINE [Concomitant]
     Active Substance: CHLORPROMAZINE
     Dates: start: 20170701
  14. LOVAZA [Concomitant]
     Active Substance: OMEGA-3-ACID ETHYL ESTERS
     Dates: start: 20170731

REACTIONS (3)
  - Therapy cessation [None]
  - Skin discolouration [None]
  - Erythema [None]

NARRATIVE: CASE EVENT DATE: 20180207
